FAERS Safety Report 5972999-3 (Version None)
Quarter: 2008Q4

REPORT INFORMATION
  Report Type: 
  Country: None (occurrence: None)
  Receive Date: 20081201
  Receipt Date: 20081125
  Transmission Date: 20090506
  Serious: Yes (Life-Threatening, Other)
  Sender: FDA-Public Use
  Company Number: PHHY2008VE29682

PATIENT
  Sex: Female

DRUGS (5)
  1. ACLASTA [Suspect]
     Indication: OSTEOPOROSIS
     Dosage: 5 MG, ONCE/SINGLE
     Route: 042
     Dates: start: 20081111
  2. LOVAZA [Concomitant]
     Indication: OVERWEIGHT
     Dosage: ONECE A DAY
  3. SOYA LECITHIN [Concomitant]
     Indication: OVERWEIGHT
     Dosage: 1200 MG, QH
  4. SIBUTRAMINE HYDROCHLORIDE [Concomitant]
     Indication: OVERWEIGHT
     Dosage: UNK
     Dates: start: 20081103
  5. GLUCOFAGE [Concomitant]
     Indication: OVERWEIGHT
     Dosage: UNK
     Dates: start: 20081103

REACTIONS (6)
  - BACK PAIN [None]
  - CHEST PAIN [None]
  - DIZZINESS [None]
  - HEADACHE [None]
  - MYOCARDIAL INFARCTION [None]
  - PYREXIA [None]
